FAERS Safety Report 22336706 (Version 1)
Quarter: 2023Q2

REPORT INFORMATION
  Report Type: Spontaneous
  Country: US (occurrence: US)
  Receive Date: 20230518
  Receipt Date: 20230518
  Transmission Date: 20230721
  Serious: No
  Sender: FDA-Public Use
  Company Number: US-BRISTOL-MYERS SQUIBB COMPANY-2023-069354

PATIENT
  Age: 10 Year
  Sex: Male
  Weight: 26.5 kg

DRUGS (2)
  1. ISTODAX [Suspect]
     Active Substance: ROMIDEPSIN
     Indication: Neuroblastoma recurrent
     Dosage: FREQUENCY: ON DAYS 1, 8, AND 15
     Dates: start: 20230510
  2. DOXORUBICIN HYDROCHLORIDE [Concomitant]
     Active Substance: DOXORUBICIN HYDROCHLORIDE
     Indication: Product used for unknown indication

REACTIONS (1)
  - Product storage error [Unknown]

NARRATIVE: CASE EVENT DATE: 20230510
